FAERS Safety Report 6180507-X (Version None)
Quarter: 2009Q2

REPORT INFORMATION
  Report Type: 
  Country: None (occurrence: None)
  Receive Date: 20090504
  Receipt Date: 20090504
  Transmission Date: 20091009
  Serious: Yes (Other)
  Sender: FDA-Public Use
  Company Number: None

PATIENT
  Age: 30 Year
  Sex: Female
  Weight: 68.0396 kg

DRUGS (2)
  1. MIRENA [Suspect]
     Indication: CONTRACEPTION
     Dosage: ONCE EVERY 5 YEARS INTRA-UTERINE
     Dates: start: 20080401, end: 20090509
  2. MIRENA [Suspect]
     Indication: ENDOMETRIOSIS
     Dosage: ONCE EVERY 5 YEARS INTRA-UTERINE
     Dates: start: 20080401, end: 20090509

REACTIONS (14)
  - ANGER [None]
  - ANXIETY [None]
  - CONDITION AGGRAVATED [None]
  - CONFUSIONAL STATE [None]
  - CRYING [None]
  - DEPRESSION [None]
  - DISTURBANCE IN ATTENTION [None]
  - FATIGUE [None]
  - IRRITABILITY [None]
  - OEDEMA PERIPHERAL [None]
  - PANIC ATTACK [None]
  - PRODUCT LABEL ISSUE [None]
  - THINKING ABNORMAL [None]
  - WEIGHT INCREASED [None]
